FAERS Safety Report 16197407 (Version 1)
Quarter: 2019Q2

REPORT INFORMATION
  Report Type: Spontaneous
  Country: US (occurrence: US)
  Receive Date: 20190311
  Receipt Date: 20190311
  Transmission Date: 20190711
  Serious: Yes (Other)
  Sender: FDA-Public Use
  Company Number: None

PATIENT
  Age: 65 Year
  Sex: Female
  Weight: 104.33 kg

DRUGS (3)
  1. ZITHROMAX [Suspect]
     Active Substance: AZITHROMYCIN DIHYDRATE
     Indication: COUGH
     Dosage: ?          QUANTITY:250 MG MILLIGRAM(S);OTHER FREQUENCY:2 -1ST DAY/1 PILL ;?
     Route: 048
     Dates: start: 20180628, end: 20180703
  2. VITAMIN C [Concomitant]
     Active Substance: ASCORBIC ACID
  3. HYDROCHLOROTHIAZIDE (ESIDRIX/HYDRODIURIL) [Concomitant]

REACTIONS (2)
  - Anosmia [None]
  - Ageusia [None]

NARRATIVE: CASE EVENT DATE: 20180703
